FAERS Safety Report 4370826-1 (Version None)
Quarter: 2004Q2

REPORT INFORMATION
  Report Type: 
  Country: None (occurrence: None)
  Receive Date: 20040601
  Receipt Date: 20040525
  Transmission Date: 20050107
  Serious: Yes (Hospitalization)
  Sender: FDA-Public Use
  Company Number: 03P-087-0232790-00

PATIENT
  Age: 53 Year
  Sex: Male

DRUGS (11)
  1. NORVIR [Suspect]
     Indication: HIV INFECTION
     Dosage: SEE IMAGE PER ORAL
     Route: 048
     Dates: start: 20000801, end: 20000921
  2. NORVIR [Suspect]
     Indication: HIV INFECTION
     Dosage: SEE IMAGE PER ORAL
     Route: 048
     Dates: start: 20000922, end: 20021126
  3. ZIDOVUDINE [Suspect]
     Indication: HIV INFECTION
     Dosage: 400 MG, 1 IN 1 D, PER ORAL
     Route: 048
     Dates: start: 20010918
  4. LAMIVUDINE [Suspect]
     Indication: HIV INFECTION
     Dosage: 300 MG, 1 IN 1 D, PER ORAL
     Route: 048
     Dates: start: 20000801
  5. SAQUINAVIR [Suspect]
     Indication: HIV INFECTION
     Dosage: 800 MG, 1 IN I D, PER ORAL
     Route: 048
     Dates: start: 20020801
  6. NEVIRAPINE [Suspect]
     Indication: HIV INFECTION
     Dosage: SEE IMAGE PER ORAL
     Route: 048
     Dates: start: 20021126, end: 20021208
  7. NEVIRAPINE [Suspect]
     Indication: HIV INFECTION
     Dosage: SEE IMAGE PER ORAL
     Route: 048
     Dates: start: 20021209
  8. BIAXIN [Concomitant]
  9. ETHAMBUTOL HCL [Concomitant]
  10. SPARFLOXACIN [Concomitant]
  11. SULFAMETHOXAZOLE [Concomitant]

REACTIONS (4)
  - HERPES ZOSTER [None]
  - HYPOAESTHESIA [None]
  - PNEUMOCYSTIS CARINII PNEUMONIA [None]
  - PNEUMOTHORAX [None]
